FAERS Safety Report 7112976-2 (Version None)
Quarter: 2010Q4

REPORT INFORMATION
  Report Type: 
  Country: None (occurrence: None)
  Receive Date: 20101119
  Receipt Date: 20101117
  Transmission Date: 20110411
  Serious: Yes (Other)
  Sender: FDA-Public Use
  Company Number: CN-BAYER-201045175GPV

PATIENT
  Age: 79 Year
  Sex: Male

DRUGS (1)
  1. ULTRAVIST 150 [Suspect]
     Indication: PRODUCT USED FOR UNKNOWN INDICATION
     Route: 042
     Dates: start: 20101103, end: 20101103

REACTIONS (4)
  - CHILLS [None]
  - HEART RATE INCREASED [None]
  - HYPERPYREXIA [None]
  - SUPRAVENTRICULAR TACHYCARDIA [None]
